FAERS Safety Report 13134596 (Version 1)
Quarter: 2017Q1

REPORT INFORMATION
  Report Type: Report from Study
  Country: CA (occurrence: CA)
  Receive Date: 20170120
  Receipt Date: 20170120
  Transmission Date: 20170428
  Serious: Yes (Life-Threatening, Hospitalization, Other)
  Sender: FDA-Public Use
  Company Number: CA-009507513-1611CAN005094

PATIENT
  Age: 62 Year
  Sex: Female

DRUGS (21)
  1. PRAVASTATIN. [Concomitant]
     Active Substance: PRAVASTATIN
     Dosage: 10 MG, QD
     Route: 048
  2. ZEPATIER [Suspect]
     Active Substance: ELBASVIR\GRAZOPREVIR
     Indication: HEPATITIS C
     Dosage: DOSE 100/50 MG (1 TABLET), QAM
     Route: 048
     Dates: start: 20160815, end: 20160926
  3. ALFACALCIDOL [Concomitant]
     Active Substance: ALFACALCIDOL
     Dosage: 0.25 MICROGRAM, QD
     Route: 048
  4. PREDNISONE. [Concomitant]
     Active Substance: PREDNISONE
     Dosage: 5 MG, QOD (EVERY 48 HOURS)
     Route: 048
  5. DARBEPOETIN ALFA [Concomitant]
     Active Substance: DARBEPOETIN ALFA
     Dosage: 110 MICROGRAM, QW (EVERY MONDAY WITH DIALYSIS)
     Route: 058
  6. ACETAMINOPHEN. [Concomitant]
     Active Substance: ACETAMINOPHEN
     Dosage: 650 MG, BID (IN THE MORNING AND AT BEDTIME)
     Route: 048
  7. PLAVIX [Concomitant]
     Active Substance: CLOPIDOGREL BISULFATE
     Dosage: 75 MG, QD
     Route: 048
  8. NADOLOL. [Concomitant]
     Active Substance: NADOLOL
     Dosage: 40 MG, ON DIALYSIS DAYS
     Route: 048
  9. VITAMIN D [Concomitant]
     Active Substance: CHOLECALCIFEROL
     Dosage: 1000 UNITS, QD
     Route: 048
  10. IRON SUCROSE [Concomitant]
     Active Substance: IRON SUCROSE
     Dosage: 100 MG, EVERY 2 WEEKS
     Route: 042
  11. CALCIUM CARBONATE. [Concomitant]
     Active Substance: CALCIUM CARBONATE
     Dosage: 600 MG, TID
     Route: 048
  12. PANTOPRAZOLE [Concomitant]
     Active Substance: PANTOPRAZOLE SODIUM
     Dosage: 40 MG, QD
     Route: 048
  13. KEFLEX [Concomitant]
     Active Substance: CEPHALEXIN
     Dosage: 500 MG, BID
     Route: 048
  14. LOPERAMIDE [Concomitant]
     Active Substance: LOPERAMIDE
     Dosage: 2-4 MG BID, PRN
     Route: 048
  15. FLUTICASONE PROPIONATE. [Concomitant]
     Active Substance: FLUTICASONE PROPIONATE
     Dosage: 250 MCG (1 PUFF), BID
     Route: 055
  16. CINACALCET HYDROCHLORIDE [Concomitant]
     Active Substance: CINACALCET HYDROCHLORIDE
     Dosage: 30 MG, QOD (AT 10.00 AM)
     Route: 048
  17. ALLOPURINOL. [Concomitant]
     Active Substance: ALLOPURINOL
     Dosage: 100 MG, QD
     Route: 048
  18. ASPIRIN. [Concomitant]
     Active Substance: ASPIRIN
     Dosage: 81 MG, QD
     Route: 048
  19. NADOLOL. [Concomitant]
     Active Substance: NADOLOL
     Dosage: 40 MG, EVERY SUNDAY, TUESDAY, THURSDAY, SATURDAY AT 08:00, 22:00 (NON-DIALYSIS DAYS)
     Route: 048
  20. ASCORBIC ACID (+) FOLIC ACID (+) VITAMIN B COMPLEX [Concomitant]
     Dosage: 1 TABLET, QD
     Route: 048
  21. LORAZEPAM. [Concomitant]
     Active Substance: LORAZEPAM
     Dosage: 0.5-1.0 MG BID,  PRN
     Route: 060

REACTIONS (9)
  - Pulmonary oedema [Recovered/Resolved]
  - Fluid overload [Recovered/Resolved]
  - Pulmonary oedema [Recovered/Resolved]
  - Chest pain [Not Recovered/Not Resolved]
  - Pulmonary oedema [Recovered/Resolved]
  - Respiratory distress [Recovered/Resolved]
  - Acute myocardial infarction [Recovered/Resolved]
  - Angina pectoris [Recovering/Resolving]
  - Cardiac failure congestive [Recovered/Resolved]

NARRATIVE: CASE EVENT DATE: 2016
